FAERS Safety Report 7775825 (Version 2)
Quarter: 2013Q2

REPORT INFORMATION
  Report Type: Spontaneous
  Country: DE (occurrence: None)
  Receive Date: 20101223
  Receipt Date: 20130612
  Transmission Date: 20140414
  Serious: Yes (Life-Threatening)
  Sender: FDA-Public Use
  Company Number: 2010022239

PATIENT
  Age: 56 Year
  Sex: Male

DRUGS (1)
  1. HAEMATE P [Suspect]
     Indication: VON WILLEBRAND^S DISEASE
     Dosage: INTRAVENOUS (NOT OTHERWISE SPECIFIED)
     Route: 042
     Dates: start: 20010116

REACTIONS (2)
  - PULMONARY EMBOLISM [None]
  - ACCIDENTAL OVERDOSE [None]
